FAERS Safety Report 8917532 (Version 4)
Quarter: 2014Q4

REPORT INFORMATION
  Report Type: Spontaneous
  Country: US (occurrence: US)
  Receive Date: 20121120
  Receipt Date: 20141204
  Transmission Date: 20150529
  Serious: Yes (Hospitalization, Other)
  Sender: FDA-Public Use
  Company Number: US-009507513-1211USA007608

PATIENT
  Sex: Female
  Weight: 59.86 kg

DRUGS (10)
  1. PHENOBARBITAL. [Concomitant]
     Active Substance: PHENOBARBITAL
     Dosage: 32.5 MG, HS
     Route: 048
     Dates: start: 2002
  2. PHENOBARBITAL. [Concomitant]
     Active Substance: PHENOBARBITAL
     Indication: EPILEPSY
     Dosage: 97.7MG - 2 TABLETS AT BEDTIME
     Route: 048
     Dates: start: 2002
  3. FOSAMAX [Suspect]
     Active Substance: ALENDRONATE SODIUM
     Dosage: 70 MG, UNK
     Route: 048
     Dates: start: 200010, end: 200606
  4. FOSAMAX [Suspect]
     Active Substance: ALENDRONATE SODIUM
     Indication: OSTEOPOROSIS
     Route: 048
  5. PHENOBARBITAL. [Concomitant]
     Active Substance: PHENOBARBITAL
     Dosage: 100 MG, UNK
     Route: 048
  6. FOSAMAX [Suspect]
     Active Substance: ALENDRONATE SODIUM
     Dosage: 70 MG, UNK
     Route: 048
     Dates: start: 200607, end: 200806
  7. PHENOBARBITAL. [Concomitant]
     Active Substance: PHENOBARBITAL
     Dosage: UNK, TID
     Route: 048
  8. DILANTIN [Concomitant]
     Active Substance: PHENYTOIN
     Indication: EPILEPSY
     Dosage: 100 MG, HS
     Dates: start: 2002
  9. FOSAMAX [Suspect]
     Active Substance: ALENDRONATE SODIUM
     Indication: OSTEOPOROSIS
     Dosage: 35 MG, UNK
     Route: 048
  10. ALENDRONATE SODIUM. [Suspect]
     Active Substance: ALENDRONATE SODIUM
     Indication: OSTEOPOROSIS
     Dosage: 70 MG, UNK
     Route: 048
     Dates: start: 200807, end: 201011

REACTIONS (44)
  - Coronary arterial stent insertion [Unknown]
  - Neck pain [Unknown]
  - Spinal deformity [Unknown]
  - Dysaesthesia [Unknown]
  - Intramedullary rod insertion [Unknown]
  - Cataract [Unknown]
  - Myocardial infarction [Unknown]
  - Femur fracture [Unknown]
  - Angina pectoris [Unknown]
  - Radius fracture [Unknown]
  - Thoracic vertebral fracture [Unknown]
  - Meniscus injury [Unknown]
  - Sternotomy [Unknown]
  - Radius fracture [Unknown]
  - Fractured sacrum [Unknown]
  - Spinal disorder [Unknown]
  - Diabetes mellitus [Unknown]
  - Intramedullary rod insertion [Unknown]
  - Anaemia [Unknown]
  - Constipation [Unknown]
  - Osteoarthritis [Unknown]
  - Carotid artery stent insertion [Unknown]
  - Closed fracture manipulation [Unknown]
  - Immune system disorder [Unknown]
  - Oedema peripheral [Unknown]
  - Femur fracture [Recovered/Resolved]
  - Coronary artery bypass [Unknown]
  - Low turnover osteopathy [Unknown]
  - Coronary artery disease [Unknown]
  - Lung disorder [Unknown]
  - Rib fracture [Unknown]
  - Ulna fracture [Unknown]
  - Hypertension [Unknown]
  - Radius fracture [Unknown]
  - Palpitations [Unknown]
  - Hypoaesthesia [Unknown]
  - Fall [Unknown]
  - Body height decreased [Unknown]
  - Cataract [Unknown]
  - Cardiac operation [Unknown]
  - Hyperlipidaemia [Unknown]
  - Osteopenia [Unknown]
  - Wrist fracture [Unknown]
  - Wrist fracture [Unknown]

NARRATIVE: CASE EVENT DATE: 1999
